FAERS Safety Report 5986675 (Version 2)
Quarter: 2013Q2

REPORT INFORMATION
  Report Type: Spontaneous
  Country: HU (occurrence: HU)
  Receive Date: 20060217
  Receipt Date: 20130520
  Transmission Date: 20140414
  Serious: Yes (Other)
  Sender: FDA-Public Use
  Company Number: PHBS2006HU02133

PATIENT
  Age: 23 Year
  Sex: Female
  Weight: 52.5 kg

DRUGS (3)
  1. FLUVASTATIN SODIUM [Suspect]
     Indication: HYPERCHOLESTEROLAEMIA
     Dosage: 20 MG/DAY
  2. ENALAPRIL [Concomitant]
     Dosage: 10 MG MORNING, 20 MG EVENING
  3. ENALAPRIL [Concomitant]
     Dosage: 10 MG, BID

REACTIONS (6)
  - Autoimmune thyroiditis [Unknown]
  - Hypothyroidism [Unknown]
  - Amenorrhoea [Recovered/Resolved]
  - Rhabdomyolysis [Recovered/Resolved]
  - Myalgia [Recovered/Resolved]
  - Pyrexia [Unknown]
